FAERS Safety Report 24731426 (Version 1)
Quarter: 2024Q4

REPORT INFORMATION
  Report Type: Spontaneous
  Country: CN (occurrence: CN)
  Receive Date: 20241213
  Receipt Date: 20241213
  Transmission Date: 20250114
  Serious: Yes (Other)
  Sender: PFIZER
  Company Number: CN-PFIZER INC-PV202400158244

PATIENT
  Age: 77 Year
  Sex: Female
  Weight: 65 kg

DRUGS (1)
  1. PACLITAXEL [Suspect]
     Active Substance: PACLITAXEL
     Indication: Breast cancer
     Dosage: 240 MG, 1X/DAY
     Route: 041
     Dates: start: 20181227, end: 20181227

REACTIONS (2)
  - Nausea [Recovered/Resolved]
  - Inadequate diet [Recovered/Resolved]

NARRATIVE: CASE EVENT DATE: 20181228
